FAERS Safety Report 20429018 (Version 2)
Quarter: 2022Q3

REPORT INFORMATION
  Report Type: Report from Study
  Country: US (occurrence: US)
  Receive Date: 20220204
  Receipt Date: 20220808
  Transmission Date: 20221027
  Serious: Yes (Other)
  Sender: FDA-Public Use
  Company Number: US-BEH-2022141183

PATIENT
  Age: 71 Year
  Sex: Male

DRUGS (1)
  1. HIZENTRA [Suspect]
     Active Substance: HUMAN IMMUNOGLOBULIN G
     Indication: Primary immunodeficiency syndrome
     Dosage: 8 GRAM, QW
     Route: 058
     Dates: start: 20211220

REACTIONS (5)
  - Therapeutic response unexpected [Unknown]
  - Rash [Not Recovered/Not Resolved]
  - Immunoglobulins decreased [Recovered/Resolved]
  - Misleading laboratory test result [Unknown]
  - SARS-CoV-2 antibody test positive [Unknown]

NARRATIVE: CASE EVENT DATE: 20211229
